FAERS Safety Report 4688045-8 (Version None)
Quarter: 2005Q2

REPORT INFORMATION
  Report Type: 
  Country: None (occurrence: None)
  Receive Date: 20050610
  Receipt Date: 20050420
  Transmission Date: 20051028
  Serious: Yes (Other)
  Sender: FDA-Public Use
  Company Number: US-ROCHE-402733

PATIENT
  Age: 67 Year
  Sex: Male
  Weight: 61.7 kg

DRUGS (2)
  1. PEGASYS [Suspect]
     Route: 058
     Dates: start: 20040901, end: 20050223
  2. COPEGUS [Suspect]
     Dosage: 2 X AM, 2 X PM.
     Route: 048
     Dates: start: 20040901, end: 20050223

REACTIONS (13)
  - ALOPECIA [None]
  - ASTHENIA [None]
  - BLOOD URINE PRESENT [None]
  - COORDINATION ABNORMAL [None]
  - FATIGUE [None]
  - GASTROENTERITIS RADIATION [None]
  - PAIN [None]
  - PROSTATE CANCER [None]
  - PROSTATE CANCER RECURRENT [None]
  - VISUAL DISTURBANCE [None]
  - VOMITING [None]
  - WEIGHT DECREASED [None]
  - WHITE BLOOD CELL COUNT DECREASED [None]
